FAERS Safety Report 10034542 (Version 2)
Quarter: 2014Q1

REPORT INFORMATION
  Report Type: Report from Study
  Country: BR (occurrence: BR)
  Receive Date: 20140325
  Receipt Date: 20140325
  Transmission Date: 20141002
  Serious: Yes (Death, Hospitalization, Other)
  Sender: FDA-Public Use
  Company Number: BR-ABBVIE-13P-020-1140010-00

PATIENT
  Age: 61 Year
  Sex: Female
  Weight: 75 kg

DRUGS (3)
  1. HUMIRA [Suspect]
     Indication: RHEUMATOID ARTHRITIS
     Route: 058
     Dates: start: 20130410, end: 201307
  2. ALENDRONATE [Concomitant]
     Indication: OSTEOPOROSIS
     Route: 048
  3. CALCIUM [Concomitant]
     Indication: MINERAL SUPPLEMENTATION
     Route: 048

REACTIONS (5)
  - Endometrial cancer [Fatal]
  - Haemorrhage [Unknown]
  - Renal cancer [Not Recovered/Not Resolved]
  - Metastases to lung [Not Recovered/Not Resolved]
  - Pain [Recovered/Resolved]
